FAERS Safety Report 6402000-9 (Version None)
Quarter: 2009Q4

REPORT INFORMATION
  Report Type: 
  Country: None (occurrence: None)
  Receive Date: 20091015
  Receipt Date: 20091005
  Transmission Date: 20100525
  Serious: Yes (Hospitalization, Other)
  Sender: FDA-Public Use
  Company Number: JP-PFIZER INC-2009278373

PATIENT

DRUGS (1)
  1. HEPARIN [Suspect]
     Route: 042

REACTIONS (2)
  - ANAPHYLACTIC SHOCK [None]
  - ANOSMIA [None]
